FAERS Safety Report 14538636 (Version 3)
Quarter: 2018Q1

REPORT INFORMATION
  Report Type: Spontaneous
  Country: DE (occurrence: DE)
  Receive Date: 20180216
  Receipt Date: 20180328
  Transmission Date: 20180509
  Serious: Yes (Death, Hospitalization)
  Sender: FDA-Public Use
  Company Number: DE-ACTELION-A-CH2018-167319

PATIENT
  Age: 29 Year
  Sex: Female
  Weight: 47.5 kg

DRUGS (16)
  1. LASIX [Concomitant]
     Active Substance: FUROSEMIDE
     Dosage: 30 MG-20 MG-0 MG
  2. SILDENAFIL. [Concomitant]
     Active Substance: SILDENAFIL
     Dosage: 20 MG, TID
  3. OXYGEN. [Concomitant]
     Active Substance: OXYGEN
     Dosage: 2-3 L
     Route: 055
  4. TRACLEER [Suspect]
     Active Substance: BOSENTAN
     Indication: PULMONARY ARTERIAL HYPERTENSION
     Dosage: 62.5 MG, UNK
     Route: 048
     Dates: end: 20171228
  5. ASPIRIN. [Concomitant]
     Active Substance: ASPIRIN
     Dosage: 100 MG, OD
  6. NEXIUM [Concomitant]
     Active Substance: ESOMEPRAZOLE MAGNESIUM
     Dosage: 20 MG, OD
  7. SYMBICORT [Concomitant]
     Active Substance: BUDESONIDE\FORMOTEROL FUMARATE DIHYDRATE
     Dosage: 1 PER DAY
     Route: 055
  8. DIGIMERCK [Concomitant]
     Active Substance: DIGITOXIN
     Dosage: 0.05 MG, OD EXCEPT SUNDAY
  9. PREDNISOLON [Concomitant]
     Active Substance: PREDNISOLONE
     Dosage: 12.5 MG, OD
  10. PALEXIA [Concomitant]
     Active Substance: TAPENTADOL HYDROCHLORIDE
     Dosage: 50 MG, BID
  11. MUCOCLEAR [Concomitant]
     Dosage: 6% SEVERAL TIMES
     Route: 055
  12. ALLOPURINOL. [Concomitant]
     Active Substance: ALLOPURINOL
     Dosage: 150 MG, OD
  13. OPSUMIT [Suspect]
     Active Substance: MACITENTAN
     Indication: PULMONARY ARTERIAL HYPERTENSION
     Dosage: 10 MG, OD
     Route: 048
     Dates: start: 20171229
  14. ACC [Concomitant]
     Active Substance: ACETYLCYSTEINE
     Dosage: 600 MG, BID
  15. NOVALGIN (METAMIZOLE SODIUM) [Concomitant]
     Active Substance: METAMIZOLE SODIUM
     Dosage: 500 MG, UNK
  16. VENTAVIS [Concomitant]
     Active Substance: ILOPROST
     Indication: PULMONARY ARTERIAL HYPERTENSION
     Dosage: 6X2.5 MG
     Route: 055

REACTIONS (4)
  - General physical health deterioration [Fatal]
  - Atrioventricular septal defect [Fatal]
  - Concomitant disease aggravated [Fatal]
  - Cardiac failure [Fatal]

NARRATIVE: CASE EVENT DATE: 2017
